FAERS Safety Report 16106632 (Version 1)
Quarter: 2019Q1

REPORT INFORMATION
  Report Type: Spontaneous
  Country: FR (occurrence: FR)
  Receive Date: 20190322
  Receipt Date: 20190322
  Transmission Date: 20190418
  Serious: Yes (Hospitalization)
  Sender: FDA-Public Use
  Company Number: FR-BAYER-2013-001254

PATIENT
  Age: 53 Year
  Sex: Female
  Weight: 62 kg

DRUGS (12)
  1. IBUPROFENE [Concomitant]
     Active Substance: IBUPROFEN
     Indication: DYSPEPSIA
     Dosage: UNK
  2. ACETYLSALICYLIC ACID (PAIN AND FEVER) [Suspect]
     Active Substance: ASPIRIN
     Indication: ABDOMINAL PAIN UPPER
     Dosage: 500 MG, ONCE (LAST INTAKE)
     Dates: start: 20110728, end: 20110728
  3. NUROFEN [Suspect]
     Active Substance: IBUPROFEN
     Indication: ABDOMINAL PAIN UPPER
     Dosage: UNK
     Route: 048
     Dates: start: 20110714
  4. NUROFEN [Suspect]
     Active Substance: IBUPROFEN
     Indication: DRUG ABUSE
     Dosage: UNK
     Route: 048
     Dates: start: 20110714, end: 20110728
  5. IBUPROFEN. [Suspect]
     Active Substance: IBUPROFEN
     Indication: ABDOMINAL PAIN UPPER
     Dosage: 10 DF, ONCE (LAST INTAKE)
     Route: 048
     Dates: start: 20110728, end: 20110728
  6. IBUPROFEN. [Suspect]
     Active Substance: IBUPROFEN
     Indication: DRUG ABUSE
     Dosage: 10 DF, ONCE
     Route: 048
     Dates: start: 20110714, end: 20110728
  7. ACETYLSALICYLIC ACID (PAIN AND FEVER) [Suspect]
     Active Substance: ASPIRIN
     Indication: DRUG ABUSE
     Dosage: 5 G, ONCE
     Route: 048
     Dates: start: 20110714, end: 20110728
  8. VALDOXAN [Suspect]
     Active Substance: AGOMELATINE
     Indication: DEPRESSION
     Dosage: 25 MG, UNK
     Route: 048
     Dates: start: 20110630, end: 20110728
  9. NUROFEN [Suspect]
     Active Substance: IBUPROFEN
     Indication: DRUG ABUSE
     Dosage: UNK
     Route: 048
     Dates: start: 20110714
  10. IBUPROFENE [Concomitant]
     Active Substance: IBUPROFEN
     Indication: ABDOMINAL PAIN UPPER
  11. STILNOX [Concomitant]
     Active Substance: ZOLPIDEM TARTRATE
     Indication: PRODUCT USED FOR UNKNOWN INDICATION
     Dosage: 1 DF, QD (1 TABLET ON THE EVENING)
  12. RISPERDAL [Concomitant]
     Active Substance: RISPERIDONE
     Indication: PRODUCT USED FOR UNKNOWN INDICATION
     Dosage: 0.5 DF, UNK (HALF TABLET ON THE EVENING)

REACTIONS (6)
  - Hyponatraemia [Recovered/Resolved]
  - Drug abuse [Recovered/Resolved]
  - Inappropriate antidiuretic hormone secretion [Recovered/Resolved]
  - Melaena [Recovered/Resolved]
  - Hypovolaemia [Recovered/Resolved]
  - Loss of consciousness [Recovered/Resolved]

NARRATIVE: CASE EVENT DATE: 20110714
